FAERS Safety Report 17818529 (Version 2)
Quarter: 2020Q2

REPORT INFORMATION
  Report Type: Spontaneous
  Country: US (occurrence: US)
  Receive Date: 20200522
  Receipt Date: 20200608
  Transmission Date: 20200714
  Serious: Yes (Death, Life-Threatening)
  Sender: FDA-Public Use
  Company Number: US-GILEAD-2020-0468184

PATIENT
  Age: 77 Year
  Sex: Male
  Weight: 107.03 kg

DRUGS (13)
  1. ASCORBIC ACID. [Concomitant]
     Active Substance: ASCORBIC ACID
  2. ZINC. [Concomitant]
     Active Substance: ZINC
  3. REMDESIVIR. [Suspect]
     Active Substance: REMDESIVIR
     Dosage: 100 MG, QD
     Route: 042
     Dates: start: 20200513, end: 20200514
  4. PANTOPRAZOLE [Concomitant]
     Active Substance: PANTOPRAZOLE
  5. TAMSULOSIN [Concomitant]
     Active Substance: TAMSULOSIN
  6. ENOXAPARIN [Concomitant]
     Active Substance: ENOXAPARIN
  7. THIAMINE. [Concomitant]
     Active Substance: THIAMINE
  8. CEFEPIME [Concomitant]
     Active Substance: CEFEPIME HYDROCHLORIDE
  9. METHYLPREDNISOLONE. [Concomitant]
     Active Substance: METHYLPREDNISOLONE
  10. SERTRALINE A [Concomitant]
     Active Substance: SERTRALINE HYDROCHLORIDE
  11. IPRATROPIUM [Concomitant]
     Active Substance: IPRATROPIUM
  12. REMDESIVIR. [Suspect]
     Active Substance: REMDESIVIR
     Indication: COVID-19
     Dosage: UNK
     Route: 042
     Dates: start: 20200512, end: 20200512
  13. DOXYCYCLINE. [Concomitant]
     Active Substance: DOXYCYCLINE

REACTIONS (1)
  - Oxygen saturation decreased [Fatal]

NARRATIVE: CASE EVENT DATE: 20200513
